FAERS Safety Report 12756761 (Version 1)
Quarter: 2016Q3

REPORT INFORMATION
  Report Type: Report from Study
  Country: JP (occurrence: JP)
  Receive Date: 20160917
  Receipt Date: 20160917
  Transmission Date: 20161109
  Serious: Yes (Other)
  Sender: FDA-Public Use
  Company Number: JP-AMGEN-JPNCT2016126460

PATIENT
  Age: 74 Year
  Sex: Female
  Weight: 41 kg

DRUGS (19)
  1. ALDACTONE A [Concomitant]
     Active Substance: SPIRONOLACTONE
     Indication: CARDIAC FAILURE
     Dosage: UNK
     Route: 048
  2. ROMIPLOSTIM [Suspect]
     Active Substance: ROMIPLOSTIM
     Dosage: 3 MUG/KG, Q2WK
     Route: 058
     Dates: start: 20150812
  3. ROMIPLOSTIM [Suspect]
     Active Substance: ROMIPLOSTIM
     Dosage: 3 MUG/KG, QWK
     Route: 058
     Dates: start: 20151111
  4. ROMIPLOSTIM [Suspect]
     Active Substance: ROMIPLOSTIM
     Dosage: 3 MUG/KG, QWK
     Route: 058
     Dates: start: 20150708
  5. PREDONINE [Concomitant]
     Active Substance: PREDNISOLONE\PREDNISOLONE ACETATE\PREDNISOLONE SODIUM SUCCINATE
     Indication: IMMUNE THROMBOCYTOPENIC PURPURA
     Dosage: 5 MG, UNK
     Route: 065
     Dates: start: 20150529
  6. NICORANDIL [Concomitant]
     Active Substance: NICORANDIL
     Indication: CARDIAC FAILURE
     Dosage: UNK
     Route: 065
  7. ROMIPLOSTIM [Suspect]
     Active Substance: ROMIPLOSTIM
     Dosage: 3 MUG/KG, QD
     Route: 058
     Dates: start: 20150626
  8. ROMIPLOSTIM [Suspect]
     Active Substance: ROMIPLOSTIM
     Dosage: 3 MUG/KG, QWK
     Route: 058
     Dates: start: 20150902
  9. ENALAPRIL [Concomitant]
     Active Substance: ENALAPRIL
     Indication: HYPERTENSION
     Dosage: UNK
     Route: 048
  10. REMINYL [Concomitant]
     Active Substance: GALANTAMINE
     Indication: HEMIPLEGIA
     Dosage: UNK
     Route: 048
  11. DEPAKENE [Concomitant]
     Active Substance: VALPROIC ACID
     Indication: HEMIPLEGIA
     Dosage: UNK
     Route: 048
  12. ROMIPLOSTIM [Suspect]
     Active Substance: ROMIPLOSTIM
     Dosage: 2 MUG/KG, QD
     Route: 058
     Dates: start: 20150619
  13. PARIET [Concomitant]
     Active Substance: RABEPRAZOLE SODIUM
     Indication: PROPHYLAXIS
     Dosage: UNK
     Route: 048
  14. DIART [Concomitant]
     Active Substance: AZOSEMIDE
     Indication: HYPERTENSION
     Dosage: UNK
     Route: 048
  15. ROMIPLOSTIM [Suspect]
     Active Substance: ROMIPLOSTIM
     Dosage: 3 MUG/KG, QWK
     Route: 058
     Dates: start: 20150708
  16. ROMIPLOSTIM [Suspect]
     Active Substance: ROMIPLOSTIM
     Dosage: 3 MUG/KG, QWK
     Route: 058
     Dates: start: 20150930
  17. ARTIST [Concomitant]
     Active Substance: CARVEDILOL
     Indication: CARDIAC FAILURE
     Dosage: UNK
     Route: 048
  18. POLARAMINE [Concomitant]
     Active Substance: DEXCHLORPHENIRAMINE MALEATE
     Indication: AUTOIMMUNE HEPATITIS
     Dosage: UNK
     Route: 065
  19. ROMIPLOSTIM [Suspect]
     Active Substance: ROMIPLOSTIM
     Indication: IMMUNE THROMBOCYTOPENIC PURPURA
     Dosage: 1 MUG/KG, QD
     Route: 058
     Dates: start: 20150612

REACTIONS (3)
  - Platelet count decreased [Recovering/Resolving]
  - Platelet count decreased [Recovering/Resolving]
  - Haemorrhage subcutaneous [Recovered/Resolved]

NARRATIVE: CASE EVENT DATE: 20150619
